FAERS Safety Report 15803797 (Version 1)
Quarter: 2019Q1

REPORT INFORMATION
  Report Type: Spontaneous
  Country: KR (occurrence: KR)
  Receive Date: 20190109
  Receipt Date: 20190109
  Transmission Date: 20190417
  Serious: Yes (Other)
  Sender: FDA-Public Use
  Company Number: KR-JNJFOC-20190106390

PATIENT
  Age: 31 Year
  Sex: Male
  Weight: 39 kg

DRUGS (1)
  1. INFLIXIMAB [Suspect]
     Active Substance: INFLIXIMAB
     Indication: CROHN^S DISEASE
     Route: 042
     Dates: start: 201001, end: 201705

REACTIONS (4)
  - Demyelination [Unknown]
  - Small intestinal resection [Unknown]
  - Large intestinal stenosis [Unknown]
  - Surgery [Unknown]

NARRATIVE: CASE EVENT DATE: 201005
